FAERS Safety Report 5694003-7 (Version None)
Quarter: 2008Q2

REPORT INFORMATION
  Report Type: 
  Country: None (occurrence: None)
  Receive Date: 20080403
  Receipt Date: 20080114
  Transmission Date: 20081010
  Serious: Yes (Other)
  Sender: FDA-Public Use
  Company Number: US-GILEAD-2007-0014591

PATIENT
  Sex: Male
  Weight: 86.4 kg

DRUGS (8)
  1. AMBRISENTAN [Suspect]
     Indication: PULMONARY HYPERTENSION
     Route: 048
     Dates: start: 20070502, end: 20071019
  2. AMBRISENTAN [Suspect]
     Route: 048
     Dates: start: 20071020, end: 20071210
  3. MEDROL [Concomitant]
     Indication: AUTOIMMUNE DISORDER
     Route: 048
     Dates: start: 19961201, end: 20071112
  4. MEDROL [Concomitant]
     Route: 048
     Dates: start: 20071112
  5. OSCAL + VIT D [Concomitant]
     Indication: MEDICAL DIET
     Route: 048
  6. ENSURE [Concomitant]
     Indication: MEDICAL DIET
     Route: 048
  7. PRILOSEC [Concomitant]
     Route: 048
  8. CYTOXAN [Concomitant]
     Indication: AUTOIMMUNE DISORDER
     Route: 042
     Dates: start: 20071023, end: 20071214

REACTIONS (1)
  - LIVER FUNCTION TEST ABNORMAL [None]
